FAERS Safety Report 17750081 (Version 1)
Quarter: 2020Q2

REPORT INFORMATION
  Report Type: Report from Study
  Country: US (occurrence: US)
  Receive Date: 20200506
  Receipt Date: 20200506
  Transmission Date: 20200714
  Serious: Yes (Other)
  Sender: FDA-Public Use
  Company Number: US-HORIZON-KRY-0584-2020

PATIENT
  Sex: Male

DRUGS (1)
  1. KRYSTEXXA [Suspect]
     Active Substance: PEGLOTICASE
     Indication: GOUT
     Dosage: EVERY 2 WEEKS
     Route: 042

REACTIONS (8)
  - Pharyngeal swelling [Unknown]
  - Pruritus [Recovered/Resolved]
  - Angioedema [Unknown]
  - Pharyngeal swelling [Recovered/Resolved]
  - Throat irritation [Recovered/Resolved]
  - Angioedema [Recovered/Resolved]
  - Throat irritation [Unknown]
  - Pruritus [Unknown]

NARRATIVE: CASE EVENT DATE: 202004
